FAERS Safety Report 20023830 (Version 3)
Quarter: 2022Q3

REPORT INFORMATION
  Report Type: Spontaneous
  Country: US (occurrence: US)
  Receive Date: 20211102
  Receipt Date: 20220912
  Transmission Date: 20221027
  Serious: No
  Sender: FDA-Public Use
  Company Number: US-PFIZER INC-202101441075

PATIENT
  Age: 73 Year
  Sex: Male

DRUGS (3)
  1. SUTENT [Suspect]
     Active Substance: SUNITINIB MALATE
     Indication: Gastrointestinal stromal tumour
     Dosage: 37.5 MG (DOSAGE WAS 37.5 MG. NOW IT IS 25 MG)
  2. SUTENT [Suspect]
     Active Substance: SUNITINIB MALATE
     Dosage: 25 MG, CYCLIC (TAKE 1 CAPSULE BY MOUTH DAILY. TAKE WITH OUR WITHOUT FOOD FOR 4 WKS, THEN 2 WKS OFF)
     Route: 048
  3. SUTENT [Suspect]
     Active Substance: SUNITINIB MALATE
     Dosage: 25 MG, DAILY

REACTIONS (1)
  - Off label use [Unknown]
